FAERS Safety Report 5160983-1 (Version None)
Quarter: 2006Q4

REPORT INFORMATION
  Report Type: 
  Country: None (occurrence: None)
  Receive Date: 20061130
  Receipt Date: 20060706
  Transmission Date: 20070319
  Serious: No
  Sender: FDA-Public Use
  Company Number: US-BRISTOL-MYERS SQUIBB COMPANY-13434774

PATIENT
  Age: 84 Year
  Sex: Female

DRUGS (2)
  1. AVALIDE [Suspect]
  2. VICODIN [Concomitant]

REACTIONS (1)
  - BLOOD CREATININE INCREASED [None]
